FAERS Safety Report 6268548-5 (Version None)
Quarter: 2009Q3

REPORT INFORMATION
  Report Type: 
  Country: None (occurrence: None)
  Receive Date: 20090713
  Receipt Date: 20090713
  Transmission Date: 20100115
  Serious: Yes (Life-Threatening)
  Sender: FDA-Public Use
  Company Number: None

PATIENT
  Age: 48 Year
  Sex: Female
  Weight: 68.9467 kg

DRUGS (1)
  1. PROAIR HFA [Suspect]
     Indication: CHRONIC OBSTRUCTIVE PULMONARY DISEASE
     Dosage: 2PUFFS AS NEEDED
     Dates: start: 20090316, end: 20090626

REACTIONS (4)
  - ALOPECIA [None]
  - DYSPNOEA [None]
  - LUNG DISORDER [None]
  - PANIC ATTACK [None]
